FAERS Safety Report 6077586-7 (Version None)
Quarter: 2009Q1

REPORT INFORMATION
  Report Type: 
  Country: None (occurrence: None)
  Receive Date: 20090213
  Receipt Date: 20090129
  Transmission Date: 20090719
  Serious: Yes (Hospitalization)
  Sender: FDA-Public Use
  Company Number: DE-GENENTECH-270797

PATIENT
  Sex: Female

DRUGS (3)
  1. BEVACIZUMAB [Suspect]
     Indication: BREAST CANCER METASTATIC
     Dosage: 575 MG, UNK
     Route: 042
     Dates: start: 20080423, end: 20081007
  2. PACLITAXEL [Concomitant]
     Indication: BREAST CANCER METASTATIC
     Dosage: 132 MG, UNK
     Route: 042
     Dates: start: 20080423, end: 20081007
  3. CARBOPLATIN [Concomitant]
     Indication: BREAST CANCER METASTATIC
     Dosage: 250 MG, UNK
     Route: 042
     Dates: start: 20080423, end: 20081007

REACTIONS (1)
  - MULTIPLE SCLEROSIS [None]
